FAERS Safety Report 8999565 (Version 2)
Quarter: 2013Q1

REPORT INFORMATION
  Report Type: Spontaneous
  Country: US (occurrence: US)
  Receive Date: 20130102
  Receipt Date: 20130204
  Transmission Date: 20140127
  Serious: No
  Sender: FDA-Public Use
  Company Number: US-AMGEN-USASP2012081286

PATIENT
  Age: 4 Year
  Sex: Female

DRUGS (2)
  1. ENBREL [Suspect]
     Indication: JUVENILE IDIOPATHIC ARTHRITIS
     Dosage: 25 MG, QWK
     Dates: start: 20121002, end: 20130105
  2. METHOTREXATE [Concomitant]
     Dosage: 0.3 MG, QWK
     Route: 058
     Dates: start: 201207

REACTIONS (2)
  - Overdose [Recovered/Resolved]
  - Injection site pain [Recovered/Resolved]
